FAERS Safety Report 4720484-9 (Version None)
Quarter: 2005Q3

REPORT INFORMATION
  Report Type: 
  Country: None (occurrence: None)
  Receive Date: 20050721
  Receipt Date: 20040922
  Transmission Date: 20060218
  Serious: No
  Sender: FDA-Public Use
  Company Number: US-BRISTOL-MYERS SQUIBB COMPANY-12709598

PATIENT
  Sex: Male

DRUGS (1)
  1. GLUCOVANCE [Suspect]
     Indication: BLOOD GLUCOSE INCREASED
     Route: 048

REACTIONS (1)
  - WEIGHT INCREASED [None]
